FAERS Safety Report 7363730-8 (Version None)
Quarter: 2011Q1

REPORT INFORMATION
  Report Type: 
  Country: None (occurrence: None)
  Receive Date: 20110321
  Receipt Date: 20110314
  Transmission Date: 20110831
  Serious: Yes (Death, Hospitalization, Other)
  Sender: FDA-Public Use
  Company Number: KR-BAYER-2011-014680

PATIENT
  Sex: Male
  Weight: 160.1 kg

DRUGS (9)
  1. SORAFENIB (RAF KINASE INHIBITOR) [Suspect]
     Indication: HEPATIC NEOPLASM MALIGNANT
     Dosage: 200 MG IN AM/400 MG IN PM
     Route: 048
     Dates: start: 20110125, end: 20110208
  2. UNCODEABLE ^UNCLASSIFIABLE^ [Concomitant]
     Indication: ASPARTATE AMINOTRANSFERASE INCREASED
     Dosage: 1 DF, UNK
     Route: 048
     Dates: start: 20110209
  3. METOCLOPRAMIDE [Concomitant]
     Indication: NAUSEA
     Dosage: DAILY DOSE 20 MG
     Route: 048
     Dates: start: 20110127, end: 20110201
  4. UNCODEABLE ^UNCLASSIFIABLE^ [Concomitant]
     Indication: PROPHYLAXIS AGAINST DEHYDRATION
     Dosage: 1 L, UNK
     Route: 042
     Dates: start: 20110208, end: 20110209
  5. URSO 250 [Concomitant]
     Indication: ASPARTATE AMINOTRANSFERASE INCREASED
     Dosage: 300 MG, UNK
     Route: 048
     Dates: start: 20110209
  6. CHLORHEXIDINE GLUCONATE [Concomitant]
     Indication: PROPHYLAXIS
     Dosage: DAILY DOSE 100 ML
     Route: 048
     Dates: start: 20110125
  7. LACTULOSE [Concomitant]
     Indication: HEPATIC FAILURE
     Dosage: 200 ML, UNK
     Route: 048
     Dates: start: 20110208, end: 20110209
  8. MEK INHIBITOR (DIHYDROXYPROP-DIFLU-METHOXYPHEN-CYCLOPROPA-SULFAMI) [Suspect]
     Indication: HEPATIC NEOPLASM MALIGNANT
     Dosage: 50 MG, BID
     Route: 048
     Dates: start: 20110125, end: 20110208
  9. LOPERAMIDE [Concomitant]
     Indication: DIARRHOEA
     Dosage: 3 MG, UNK
     Route: 048
     Dates: start: 20110201, end: 20110207

REACTIONS (3)
  - HEPATIC FAILURE [None]
  - DEATH [None]
  - ASTHENIA [None]
